FAERS Safety Report 7368705-0 (Version None)
Quarter: 2011Q1

REPORT INFORMATION
  Report Type: 
  Country: None (occurrence: None)
  Receive Date: 20110304
  Receipt Date: 20110217
  Transmission Date: 20110831
  Serious: Yes (Other)
  Sender: FDA-Public Use
  Company Number: 2011SP007691

PATIENT
  Age: 74 Year
  Sex: Female

DRUGS (3)
  1. NASONEX [Suspect]
     Indication: RHINITIS ALLERGIC
     Dates: start: 20101101, end: 20110214
  2. SINGULAIR [Concomitant]
  3. ZYRTEC [Concomitant]

REACTIONS (2)
  - TRIGEMINAL NEURALGIA [None]
  - HERPES ZOSTER [None]
